FAERS Safety Report 11499859 (Version 3)
Quarter: 2015Q4

REPORT INFORMATION
  Report Type: Report from Study
  Country: CA (occurrence: CA)
  Receive Date: 20150914
  Receipt Date: 20151208
  Transmission Date: 20160304
  Serious: Yes (Hospitalization, Other)
  Sender: FDA-Public Use
  Company Number: CA-JNJFOC-20150905487

PATIENT
  Age: 7 Year
  Sex: Female
  Weight: 35.5 kg

DRUGS (9)
  1. REMICADE [Suspect]
     Active Substance: INFLIXIMAB
     Indication: COLITIS ULCERATIVE
     Dosage: 100 MG VIAL, REPORTED AS FOURTH INFUSION
     Route: 042
     Dates: start: 20150918
  2. FLAGYL [Concomitant]
     Active Substance: METRONIDAZOLE\METRONIDAZOLE HYDROCHLORIDE
     Route: 065
  3. IRON SUPPLEMENTS [Concomitant]
     Active Substance: IRON
     Route: 065
  4. REMICADE [Suspect]
     Active Substance: INFLIXIMAB
     Indication: COLITIS ULCERATIVE
     Dosage: EVERY 6-8 WEEKS
     Route: 042
     Dates: start: 201507
  5. REMICADE [Suspect]
     Active Substance: INFLIXIMAB
     Indication: COLITIS ULCERATIVE
     Dosage: 2 WEEKS AFTER THE 1ST DOSE
     Route: 042
     Dates: start: 2015
  6. PREDNISONE. [Concomitant]
     Active Substance: PREDNISONE
     Route: 065
  7. REMICADE [Suspect]
     Active Substance: INFLIXIMAB
     Indication: COLITIS ULCERATIVE
     Dosage: 2 WEEKS AFTER THE 1ST DOSE, ONCE EVERY 6-8 WEEKS
     Route: 042
     Dates: start: 201508
  8. PREDNISONE. [Concomitant]
     Active Substance: PREDNISONE
     Dosage: THE DOSE WAS HIGHER BEFORE, IT IS BEING DECREASED
     Route: 065
  9. VITAMIN D [Concomitant]
     Active Substance: CHOLECALCIFEROL
     Route: 065

REACTIONS (6)
  - Colitis ulcerative [Unknown]
  - Drug specific antibody present [Unknown]
  - Infusion related reaction [Unknown]
  - Drug ineffective [Unknown]
  - Drug level below therapeutic [Unknown]
  - Anaphylactic reaction [Unknown]

NARRATIVE: CASE EVENT DATE: 20150918
